FAERS Safety Report 7918266-X (Version None)
Quarter: 2011Q4

REPORT INFORMATION
  Report Type: 
  Country: None (occurrence: None)
  Receive Date: 20111116
  Receipt Date: 20111108
  Transmission Date: 20120403
  Serious: Yes (Life-Threatening, Hospitalization)
  Sender: FDA-Public Use
  Company Number: MX-GLAXOSMITHKLINE-B0747228A

PATIENT
  Age: 86 Year
  Sex: Female
  Weight: 66.5 kg

DRUGS (10)
  1. ASPIRIN [Concomitant]
     Route: 065
  2. LOSARTAN [Concomitant]
     Route: 065
  3. CLONAZEPAM [Concomitant]
     Route: 065
  4. VERAPAMIL [Concomitant]
     Indication: ATRIAL FIBRILLATION
     Dates: start: 20110802
  5. PROPAFENONE HCL [Suspect]
     Dosage: 150MG TWICE PER DAY
     Route: 048
     Dates: start: 20110814, end: 20110817
  6. CRESTOR [Concomitant]
     Route: 065
  7. PANTOPRAZOLE [Concomitant]
     Route: 065
  8. FENOFIBRATE [Concomitant]
     Route: 065
  9. PRAMIGEL [Concomitant]
     Route: 065
  10. PROPAFENONE HCL [Suspect]
     Indication: ARRHYTHMIA
     Dosage: 600MG PER DAY
     Route: 048
     Dates: start: 20110813, end: 20110813

REACTIONS (5)
  - VENTRICULAR ARRHYTHMIA [None]
  - HEART RATE ABNORMAL [None]
  - BUNDLE BRANCH BLOCK LEFT [None]
  - ATRIAL FIBRILLATION [None]
  - ELECTROCARDIOGRAM QRS COMPLEX PROLONGED [None]
